FAERS Safety Report 22657952 (Version 1)
Quarter: 2023Q2

REPORT INFORMATION
  Report Type: Report from Study
  Country: US (occurrence: US)
  Receive Date: 20230630
  Receipt Date: 20230630
  Transmission Date: 20230722
  Serious: Yes (Other)
  Sender: FDA-Public Use
  Company Number: US-JNJFOC-20230652591

PATIENT

DRUGS (2)
  1. DARATUMUMAB [Suspect]
     Active Substance: DARATUMUMAB
     Indication: Immune tolerance induction
     Dosage: 6 DOSES
     Route: 042
  2. BELATACEPT [Suspect]
     Active Substance: BELATACEPT
     Indication: Immune tolerance induction
     Dosage: 4 DOSES
     Route: 065

REACTIONS (5)
  - Cholecystitis acute [Unknown]
  - Upper gastrointestinal haemorrhage [Unknown]
  - Pyrexia [Unknown]
  - COVID-19 [Unknown]
  - Off label use [Unknown]
